FAERS Safety Report 7536589-3 (Version None)
Quarter: 2011Q2

REPORT INFORMATION
  Report Type: 
  Country: None (occurrence: None)
  Receive Date: 20110609
  Receipt Date: 20110606
  Transmission Date: 20111010
  Serious: Yes (Disabling)
  Sender: FDA-Public Use
  Company Number: FR-PFIZER INC-2011062670

PATIENT
  Age: 83 Year
  Sex: Female

DRUGS (3)
  1. LYRICA [Suspect]
     Dosage: 100 MG, 1X/DAY
     Route: 048
  2. EFFEXOR XR [Suspect]
     Dosage: 150 MG, 1X/DAY
     Route: 048
     Dates: start: 20090928, end: 20110227
  3. LITHIUM CARBONATE [Suspect]
     Dosage: 400 MG, 1X/DAY
     Route: 048

REACTIONS (3)
  - PSYCHOMOTOR HYPERACTIVITY [None]
  - ANXIETY [None]
  - DYSKINESIA [None]
